FAERS Safety Report 21548130 (Version 2)
Quarter: 2022Q4

REPORT INFORMATION
  Report Type: Spontaneous
  Country: US (occurrence: US)
  Receive Date: 20221103
  Receipt Date: 20221118
  Transmission Date: 20230113
  Serious: Yes (Other)
  Sender: FDA-Public Use
  Company Number: US-TEVA-2022-US-2821458

PATIENT
  Age: 70 Year
  Sex: Female

DRUGS (3)
  1. PEMETREXED [Suspect]
     Active Substance: PEMETREXED
     Indication: Small cell lung cancer metastatic
     Dosage: ADDITIONAL INFO: ACTION TAKEN: TREATMENT CONTINUED
     Route: 065
  2. CARBOPLATIN [Suspect]
     Active Substance: CARBOPLATIN
     Indication: Small cell lung cancer metastatic
     Dosage: ADDITIONAL INFO: ACTION TAKEN: TREATMENT CONTINUED
     Route: 065
  3. PEMBROLIZUMAB [Suspect]
     Active Substance: PEMBROLIZUMAB
     Indication: Small cell lung cancer metastatic
     Dosage: ADDITIONAL INFO: ACTION TAKEN: TREATMENT CONTINUED
     Route: 065

REACTIONS (1)
  - Bone marrow disorder [Unknown]
